FAERS Safety Report 16300802 (Version 2)
Quarter: 2019Q2

REPORT INFORMATION
  Report Type: Spontaneous
  Country: US (occurrence: US)
  Receive Date: 20190510
  Receipt Date: 20190527
  Transmission Date: 20190711
  Serious: Yes (Other)
  Sender: FDA-Public Use
  Company Number: US-BEH-2019101965

PATIENT
  Age: 21 Month
  Sex: Female

DRUGS (1)
  1. RIASTAP [Suspect]
     Active Substance: FIBRINOGEN HUMAN
     Indication: FACTOR I DEFICIENCY
     Route: 065

REACTIONS (3)
  - Drug ineffective [Unknown]
  - Hypersensitivity [Recovered/Resolved]
  - Inhibiting antibodies positive [Recovered/Resolved]
